FAERS Safety Report 14890835 (Version 2)
Quarter: 2018Q2

REPORT INFORMATION
  Report Type: Report from Study
  Country: CO (occurrence: CO)
  Receive Date: 20180514
  Receipt Date: 20180515
  Transmission Date: 20180711
  Serious: Yes (Hospitalization)
  Sender: FDA-Public Use
  Company Number: CO-JNJFOC-20180411521

PATIENT
  Age: 78 Year
  Sex: Male
  Weight: 83 kg

DRUGS (2)
  1. PREDNISOLONE. [Concomitant]
     Active Substance: PREDNISOLONE
     Indication: PROSTATE CANCER METASTATIC
     Route: 048
     Dates: start: 20151210
  2. ZYTIGA [Suspect]
     Active Substance: ABIRATERONE ACETATE
     Indication: PROSTATE CANCER METASTATIC
     Route: 048
     Dates: start: 20151210

REACTIONS (8)
  - Pain in extremity [Unknown]
  - Oedema peripheral [Unknown]
  - Cognitive disorder [Not Recovered/Not Resolved]
  - Medical device implantation [Unknown]
  - Skin discolouration [Not Recovered/Not Resolved]
  - Blood potassium decreased [Not Recovered/Not Resolved]
  - Blood sodium decreased [Not Recovered/Not Resolved]
  - Burning sensation [Unknown]

NARRATIVE: CASE EVENT DATE: 20180402
